FAERS Safety Report 25776198 (Version 1)
Quarter: 2025Q3

REPORT INFORMATION
  Report Type: Spontaneous
  Country: US (occurrence: US)
  Receive Date: 20250909
  Receipt Date: 20250909
  Transmission Date: 20251021
  Serious: No
  Sender: DOMPE FARMACEUTICI
  Company Number: US-FARMAPROD-202502-0473

PATIENT
  Sex: Female
  Weight: 73.48 kg

DRUGS (7)
  1. OXERVATE [Suspect]
     Active Substance: CENEGERMIN-BKBJ
     Indication: Neurotrophic keratopathy
     Route: 047
     Dates: start: 20220412
  2. OXERVATE [Suspect]
     Active Substance: CENEGERMIN-BKBJ
     Route: 047
     Dates: start: 20250116
  3. EYSUVIS [Concomitant]
     Active Substance: LOTEPREDNOL ETABONATE
  4. CEQUA [Concomitant]
     Active Substance: CYCLOSPORINE
  5. SERUM DROPS [Concomitant]
  6. PRP [Concomitant]
  7. OPTIMEL MANUKA [Concomitant]

REACTIONS (1)
  - Weight decreased [Unknown]
